FAERS Safety Report 8919816 (Version 1)
Quarter: 2012Q4

REPORT INFORMATION
  Report Type: 
  Country: IT (occurrence: IT)
  Receive Date: 20121121
  Receipt Date: 20121121
  Transmission Date: 20130627
  Serious: Yes (Hospitalization)
  Sender: FDA-Public Use
  Company Number: IT-MYLANLABS-2012S1023519

PATIENT
  Age: 72 Year
  Sex: Female

DRUGS (3)
  1. METFORMIN [Suspect]
     Indication: DIABETES MELLITUS
     Route: 048
     Dates: start: 20120101, end: 20121107
  2. MUSCORIL [Concomitant]
     Indication: BACK PAIN
     Dates: start: 20121107
  3. VOLTAREN [Concomitant]
     Indication: BACK PAIN
     Dates: start: 20121107

REACTIONS (3)
  - Lactic acidosis [Unknown]
  - Blood creatinine increased [Unknown]
  - Blood potassium increased [Unknown]
